FAERS Safety Report 20186469 (Version 1)
Quarter: 2021Q4

REPORT INFORMATION
  Report Type: Spontaneous
  Country: US (occurrence: US)
  Receive Date: 20211215
  Receipt Date: 20211215
  Transmission Date: 20220303
  Serious: No
  Sender: FDA-Public Use
  Company Number: US-RECKITT BENCKISER HEALTHCARE INT LIMITED-RB-94415-2021

PATIENT
  Age: 7 Year
  Sex: Female

DRUGS (1)
  1. DELSYM [Suspect]
     Active Substance: DEXTROMETHORPHAN
     Indication: Product used for unknown indication
     Dosage: UNK (REPORTER GAVE 2.5 MILLILITER AT 9:30 A.M AND PATIENT WAS ALREADY GIVEN 5 MILLILITER AT 6:30 A.M
     Route: 065
     Dates: start: 20210811

REACTIONS (2)
  - Extra dose administered [Unknown]
  - Incorrect product administration duration [Unknown]

NARRATIVE: CASE EVENT DATE: 20210811
